FAERS Safety Report 7329125-8 (Version None)
Quarter: 2011Q1

REPORT INFORMATION
  Report Type: 
  Country: None (occurrence: None)
  Receive Date: 20110303
  Receipt Date: 20110222
  Transmission Date: 20110831
  Serious: Yes (Hospitalization)
  Sender: FDA-Public Use
  Company Number: US-ASTRAZENECA-2011SE09896

PATIENT
  Age: 42 Year
  Sex: Male

DRUGS (7)
  1. SEROQUEL XR [Suspect]
     Route: 048
     Dates: start: 20100101
  2. CITALOPRAM [Concomitant]
  3. SEROQUEL XR [Suspect]
     Route: 048
     Dates: start: 20100101
  4. SEROQUEL XR [Suspect]
     Indication: SCHIZOPHRENIA
     Route: 048
     Dates: start: 20090101, end: 20100401
  5. AMLODIPINE [Concomitant]
  6. SEROQUEL XR [Suspect]
     Indication: DEPRESSION
     Route: 048
     Dates: start: 20090101, end: 20100401
  7. LISINOPRIL AND HYDROCHLOROTHIAZIDE [Concomitant]
     Dosage: DAILY DOSE OF 20/25

REACTIONS (2)
  - MENTAL DISORDER [None]
  - HIP ARTHROPLASTY [None]
